FAERS Safety Report 20501130 (Version 1)
Quarter: 2022Q1

REPORT INFORMATION
  Report Type: Report from Study
  Country: SK (occurrence: SK)
  Receive Date: 20220222
  Receipt Date: 20220222
  Transmission Date: 20220423
  Serious: Yes (Other)
  Sender: FDA-Public Use
  Company Number: SK-GLAXOSMITHKLINE-SKCH2022EME007073

PATIENT

DRUGS (2)
  1. DICLOFENAC [Interacting]
     Active Substance: DICLOFENAC
     Indication: Product used for unknown indication
     Dosage: UNK
  2. GINKGO [Interacting]
     Active Substance: GINKGO
     Indication: Product used for unknown indication
     Dosage: UNK

REACTIONS (2)
  - Haemorrhage [Unknown]
  - Drug interaction [Unknown]
